FAERS Safety Report 5815426-9 (Version None)
Quarter: 2008Q3

REPORT INFORMATION
  Report Type: 
  Country: None (occurrence: None)
  Receive Date: 20080718
  Receipt Date: 20080707
  Transmission Date: 20090109
  Serious: Yes (Other)
  Sender: FDA-Public Use
  Company Number: US-PFIZER INC-2008056809

PATIENT
  Sex: Female

DRUGS (1)
  1. DILANTIN [Suspect]

REACTIONS (5)
  - BONE DISORDER [None]
  - CONVULSION [None]
  - GINGIVAL DISORDER [None]
  - TOOTH DISORDER [None]
  - UNEVALUABLE EVENT [None]
